FAERS Safety Report 8056705-7 (Version None)
Quarter: 2012Q1

REPORT INFORMATION
  Report Type: 
  Country: None (occurrence: None)
  Receive Date: 20120119
  Receipt Date: 20120113
  Transmission Date: 20120608
  Serious: Yes (Other)
  Sender: FDA-Public Use
  Company Number: FR-PFIZER INC-2012011557

PATIENT
  Age: 53 Year
  Sex: Male

DRUGS (2)
  1. CYTARABINE [Suspect]
     Indication: ACUTE MYELOID LEUKAEMIA
     Dosage: 2200 MG, 2X/DAY
     Route: 042
     Dates: start: 20110318, end: 20110322
  2. MITOXANTRONE HYDROCHLORIDE [Suspect]
     Indication: ACUTE MYELOID LEUKAEMIA
     Dosage: 20 MG, 1X/DAY
     Dates: start: 20110318, end: 20110319

REACTIONS (1)
  - BONE MARROW FAILURE [None]
